FAERS Safety Report 23740244 (Version 1)
Quarter: 2024Q2

REPORT INFORMATION
  Report Type: Spontaneous
  Country: US (occurrence: US)
  Receive Date: 20240414
  Receipt Date: 20240414
  Transmission Date: 20240716
  Serious: No
  Sender: FDA-Public Use
  Company Number: US-BAUSCHBL-2024BNL004231

PATIENT
  Age: 72 Year
  Sex: Female

DRUGS (1)
  1. MIEBO [Suspect]
     Active Substance: PERFLUOROHEXYLOCTANE
     Indication: Product used for unknown indication
     Dosage: 1 DROP IN EACH EYE DAILY
     Route: 047
     Dates: start: 2024, end: 2024

REACTIONS (24)
  - Ocular hyperaemia [Unknown]
  - Periorbital disorder [Unknown]
  - Gastrooesophageal reflux disease [Unknown]
  - Nausea [Unknown]
  - Pruritus [Unknown]
  - Dyspnoea [Unknown]
  - Eczema [Unknown]
  - Tremor [Unknown]
  - Coordination abnormal [Unknown]
  - Swelling of eyelid [Unknown]
  - Ear pain [Unknown]
  - Tongue disorder [Unknown]
  - Lethargy [Unknown]
  - Taste disorder [Unknown]
  - Oropharyngeal pain [Unknown]
  - Dyspepsia [Unknown]
  - Oral herpes [Unknown]
  - Rhinorrhoea [Unknown]
  - Upper-airway cough syndrome [Unknown]
  - Eye pain [Unknown]
  - Small fibre neuropathy [Unknown]
  - Vision blurred [Unknown]
  - Inappropriate schedule of product administration [Unknown]
  - Product label issue [Unknown]
